FAERS Safety Report 6500179-1 (Version None)
Quarter: 2009Q4

REPORT INFORMATION
  Report Type: 
  Country: None (occurrence: None)
  Receive Date: 20091216
  Receipt Date: 20091207
  Transmission Date: 20100525
  Serious: Yes (Life-Threatening, Hospitalization)
  Sender: FDA-Public Use
  Company Number: GB-PFIZER INC-2009306457

PATIENT
  Age: 73 Year
  Sex: Female

DRUGS (10)
  1. ARTHROTEC [Suspect]
     Dosage: 50 MG, 3X/DAY
     Route: 048
     Dates: start: 20030507, end: 20091119
  2. ALENDRONATE SODIUM [Suspect]
     Indication: OSTEOPOROSIS
     Dosage: 70 MG, WEEKLY
     Route: 048
     Dates: start: 20090928, end: 20091119
  3. AMOXICILLIN [Concomitant]
  4. BENDROFLUMETHIAZIDE [Concomitant]
  5. CALCIUM WITH VITAMIN D [Concomitant]
  6. CODEINE PHOSPHATE [Concomitant]
  7. DOSULEPIN HYDROCHLORIDE [Concomitant]
  8. ENALAPRIL [Concomitant]
  9. IPRATROPIUM BROMIDE [Concomitant]
  10. SERETIDE [Concomitant]

REACTIONS (3)
  - ELECTROMECHANICAL DISSOCIATION [None]
  - GASTRIC ULCER HAEMORRHAGE [None]
  - HAEMATEMESIS [None]
